FAERS Safety Report 17658315 (Version 1)
Quarter: 2020Q2

REPORT INFORMATION
  Report Type: Spontaneous
  Country: DE (occurrence: DE)
  Receive Date: 20200412
  Receipt Date: 20200412
  Transmission Date: 20200713
  Serious: Yes (Hospitalization)
  Sender: FDA-Public Use
  Company Number: DE-BIOGEN-2020BI00860811

PATIENT
  Age: 15 Year
  Sex: Male
  Weight: 56 kg

DRUGS (5)
  1. MOVICOL [Suspect]
     Active Substance: POLYETHYLENE GLYCOL 3350\POTASSIUM CHLORIDE\SODIUM BICARBONATE\SODIUM CHLORIDE
     Indication: CONSTIPATION
     Dosage: 0-0-2-0-0
     Route: 048
  2. FERRUM [Suspect]
     Active Substance: FERROUS FUMARATE
     Indication: MINERAL SUPPLEMENTATION
     Dosage: 5 ML
     Route: 048
  3. BIOCARN [Concomitant]
     Indication: SPINAL MUSCULAR ATROPHY
     Dosage: 1G/3,3 ML
     Route: 048
  4. SPINRAZA [Suspect]
     Active Substance: NUSINERSEN
     Indication: SPINAL MUSCULAR ATROPHY
     Dosage: 12 MG
     Route: 037
     Dates: start: 20171013
  5. ORFIRIL RETARD LONG [Concomitant]
     Indication: SPINAL MUSCULAR ATROPHY
     Dosage: 2 SEPARATED DOSES
     Route: 048

REACTIONS (3)
  - Vomiting [Recovered/Resolved]
  - Musculoskeletal stiffness [Recovered/Resolved]
  - Headache [Recovered/Resolved]

NARRATIVE: CASE EVENT DATE: 20190415
